FAERS Safety Report 21144540 (Version 2)
Quarter: 2022Q3

REPORT INFORMATION
  Report Type: Report from Study
  Country: US (occurrence: US)
  Receive Date: 20220728
  Receipt Date: 20220930
  Transmission Date: 20221027
  Serious: Yes (Hospitalization, Other)
  Sender: FDA-Public Use
  Company Number: US-BoehringerIngelheim-2020-BI-046108

PATIENT
  Age: 81 Year
  Sex: Female

DRUGS (3)
  1. OFEV [Suspect]
     Active Substance: NINTEDANIB
     Indication: Idiopathic pulmonary fibrosis
     Route: 048
     Dates: start: 20170510
  2. OFEV [Suspect]
     Active Substance: NINTEDANIB
     Route: 048
  3. GABAPENTIN [Suspect]
     Active Substance: GABAPENTIN
     Indication: Product used for unknown indication
     Route: 065

REACTIONS (13)
  - Vascular procedure complication [Recovered/Resolved]
  - Cardiac disorder [Unknown]
  - Medical device removal [Unknown]
  - Transient ischaemic attack [Unknown]
  - Coronary artery occlusion [Not Recovered/Not Resolved]
  - Dyspnoea [Not Recovered/Not Resolved]
  - COVID-19 [Unknown]
  - Diarrhoea [Not Recovered/Not Resolved]
  - Vomiting [Not Recovered/Not Resolved]
  - Pulmonary function test decreased [Unknown]
  - Nausea [Recovered/Resolved]
  - Tooth abscess [Unknown]
  - Breast mass [Unknown]

NARRATIVE: CASE EVENT DATE: 20200801
